FAERS Safety Report 4778417-5 (Version None)
Quarter: 2005Q3

REPORT INFORMATION
  Report Type: 
  Country: None (occurrence: None)
  Receive Date: 20050923
  Receipt Date: 20050923
  Transmission Date: 20060218
  Serious: Yes (Death, Life-Threatening, Hospitalization)
  Sender: FDA-Public Use
  Company Number: None

PATIENT
  Sex: Female
  Weight: 49.8957 kg

DRUGS (2)
  1. MINOCYCLINE    UNKNOWN       UNKNOWN [Suspect]
     Indication: ALOPECIA
     Dosage: PO
     Route: 048
     Dates: start: 20050701, end: 20050723
  2. MINOCYCLINE    UNKNOWN       UNKNOWN [Suspect]
     Indication: INFECTION
     Dosage: PO
     Route: 048
     Dates: start: 20050701, end: 20050723

REACTIONS (7)
  - HEPATIC FAILURE [None]
  - HYPERSENSITIVITY [None]
  - NEUTROPENIA [None]
  - ORF [None]
  - PNEUMONIA [None]
  - SEPSIS [None]
  - TOXIC EPIDERMAL NECROLYSIS [None]
